FAERS Safety Report 15417060 (Version 1)
Quarter: 2018Q3

REPORT INFORMATION
  Report Type: Spontaneous
  Country: US (occurrence: US)
  Receive Date: 20180924
  Receipt Date: 20180924
  Transmission Date: 20181010
  Serious: Yes (Other)
  Sender: FDA-Public Use
  Company Number: US-BEH-2018094994

PATIENT
  Age: 67 Year
  Sex: Female

DRUGS (1)
  1. HUMATE?P [Suspect]
     Active Substance: HUMAN COAGULATION FACTOR VIII/VON WILLEBRAND FACTOR COMPLEX
     Indication: HAEMORRHAGE
     Dosage: 1000 IU, UNK
     Route: 042
     Dates: start: 20170607

REACTIONS (2)
  - Laceration [Unknown]
  - Vertigo [Unknown]

NARRATIVE: CASE EVENT DATE: 20180918
